FAERS Safety Report 14411709 (Version 2)
Quarter: 2018Q1

REPORT INFORMATION
  Report Type: Spontaneous
  Country: ZA (occurrence: ZA)
  Receive Date: 20180119
  Receipt Date: 20180125
  Transmission Date: 20180509
  Serious: Yes (Death, Other)
  Sender: FDA-Public Use
  Company Number: ZA-JNJFOC-20180113701

PATIENT
  Age: 21 Year
  Sex: Female
  Weight: 35 kg

DRUGS (13)
  1. DELAMANID [Suspect]
     Active Substance: DELAMANID
     Indication: PULMONARY TUBERCULOSIS
     Dosage: 100.0 UNITS
     Route: 065
     Dates: start: 20171130
  2. TERIZIDONE [Suspect]
     Active Substance: TERIZIDONE
     Indication: PULMONARY TUBERCULOSIS
     Route: 065
     Dates: start: 20171201
  3. ALUVIA [Concomitant]
     Active Substance: LOPINAVIR\RITONAVIR
     Dosage: 400/100 MG
     Route: 048
  4. SIRTURO [Suspect]
     Active Substance: BEDAQUILINE FUMARATE
     Indication: PULMONARY TUBERCULOSIS
     Route: 048
     Dates: start: 201712
  5. DELAMANID [Suspect]
     Active Substance: DELAMANID
     Indication: PULMONARY TUBERCULOSIS
     Route: 065
     Dates: start: 20171201
  6. LEVOFLOXACIN. [Suspect]
     Active Substance: LEVOFLOXACIN
     Indication: PULMONARY TUBERCULOSIS
     Route: 065
     Dates: start: 20171201
  7. SIRTURO [Suspect]
     Active Substance: BEDAQUILINE FUMARATE
     Indication: PULMONARY TUBERCULOSIS
     Route: 048
     Dates: start: 20171201, end: 201712
  8. CLOFAZIMINE [Suspect]
     Active Substance: CLOFAZIMINE
     Indication: PULMONARY TUBERCULOSIS
     Route: 065
     Dates: start: 20171201
  9. ETHAMBUTOL [Suspect]
     Active Substance: ETHAMBUTOL HYDROCHLORIDE
     Indication: PULMONARY TUBERCULOSIS
     Route: 065
     Dates: start: 20171201
  10. PYRIDOXINE [Concomitant]
     Active Substance: PYRIDOXINE
     Route: 065
  11. TENOFOVIR [Concomitant]
     Active Substance: TENOFOVIR
     Route: 065
     Dates: start: 20171113
  12. ISONIAZID. [Suspect]
     Active Substance: ISONIAZID
     Indication: PULMONARY TUBERCULOSIS
     Route: 065
     Dates: start: 20171201
  13. VANCOMYCIN [Concomitant]
     Active Substance: VANCOMYCIN
     Route: 065
     Dates: end: 20171216

REACTIONS (2)
  - Gastroenteritis clostridial [Fatal]
  - Anaemia [Unknown]

NARRATIVE: CASE EVENT DATE: 20171204
